FAERS Safety Report 16229090 (Version 1)
Quarter: 2019Q2

REPORT INFORMATION
  Report Type: Spontaneous
  Country: RU (occurrence: RU)
  Receive Date: 20190423
  Receipt Date: 20190423
  Transmission Date: 20190711
  Serious: Yes (Hospitalization)
  Sender: FDA-Public Use
  Company Number: IND-RU-009507513-1904RUS008979

PATIENT
  Sex: Female

DRUGS (1)
  1. ARCOXIA [Suspect]
     Active Substance: ETORICOXIB
     Indication: OSTEOARTHRITIS
     Dosage: 120MG ONCE A DAY
     Route: 048

REACTIONS (3)
  - Abdominal pain lower [Unknown]
  - Flatulence [Unknown]
  - Vomiting [Unknown]
